FAERS Safety Report 26164751 (Version 1)
Quarter: 2025Q4

REPORT INFORMATION
  Report Type: Spontaneous
  Country: US (occurrence: US)
  Receive Date: 20251216
  Receipt Date: 20251216
  Transmission Date: 20260117
  Serious: No
  Sender: SANOFI AVENTIS
  Company Number: US-SA-2025SA370343

PATIENT
  Sex: Female

DRUGS (1)
  1. DUPIXENT [Suspect]
     Active Substance: DUPILUMAB
     Indication: Asthma
     Dosage: 600 MG, 1X
     Route: 058

REACTIONS (6)
  - Dyspnoea [Unknown]
  - Infection [Unknown]
  - Chills [Unknown]
  - Toothache [Unknown]
  - Hyperhidrosis [Unknown]
  - Dysuria [Unknown]
